FAERS Safety Report 4588272-4 (Version None)
Quarter: 2005Q1

REPORT INFORMATION
  Report Type: 
  Country: None (occurrence: None)
  Receive Date: 20050222
  Receipt Date: 20050209
  Transmission Date: 20050727
  Serious: Yes (Death, Life-Threatening, Hospitalization, Other)
  Sender: FDA-Public Use
  Company Number: GB-JNJFOC-20050202476

PATIENT
  Sex: Female
  Weight: 71 kg

DRUGS (11)
  1. REMICADE [Suspect]
     Indication: RHEUMATOID ARTHRITIS
     Route: 042
  2. METHOTREXATE [Concomitant]
  3. VIOXX [Concomitant]
  4. ATENOLOL [Concomitant]
  5. LOSEC [Concomitant]
  6. THYROXINE [Concomitant]
  7. FRUSEMIDE [Concomitant]
  8. WARFARIN SODIUM [Concomitant]
  9. FOLIC ACID [Concomitant]
  10. FOSAMAX [Concomitant]
  11. HYPROMELLOSE [Concomitant]

REACTIONS (6)
  - BLOOD PRESSURE INCREASED [None]
  - EMPYEMA [None]
  - INFUSION RELATED REACTION [None]
  - OVARIAN CANCER [None]
  - PNEUMONIA [None]
  - RASH [None]
